FAERS Safety Report 4554405-9 (Version None)
Quarter: 2005Q1

REPORT INFORMATION
  Report Type: 
  Country: None (occurrence: None)
  Receive Date: 20050118
  Receipt Date: 20050104
  Transmission Date: 20050727
  Serious: Yes (Other)
  Sender: FDA-Public Use
  Company Number: DE-JNJFOC-20050100916

PATIENT
  Sex: Male

DRUGS (2)
  1. HALDOL [Suspect]
     Route: 049
  2. HALDOL [Suspect]
     Indication: DRUG USE FOR UNKNOWN INDICATION
     Route: 049

REACTIONS (3)
  - APHONIA [None]
  - LARYNGEAL CANCER [None]
  - LARYNGEAL NEOPLASM [None]
